FAERS Safety Report 17558642 (Version 4)
Quarter: 2020Q2

REPORT INFORMATION
  Report Type: Report from Study
  Country: US (occurrence: US)
  Receive Date: 20200318
  Receipt Date: 20200528
  Transmission Date: 20200713
  Serious: Yes (Hospitalization, Other)
  Sender: FDA-Public Use
  Company Number: NVSC2020US072296

PATIENT
  Age: 11 Year
  Sex: Male
  Weight: 73.7 kg

DRUGS (3)
  1. AVASTIN [Concomitant]
     Active Substance: BEVACIZUMAB
     Indication: PRODUCT USED FOR UNKNOWN INDICATION
     Dosage: UNK
     Route: 065
     Dates: start: 20200130
  2. GSK1120212 [Suspect]
     Active Substance: TRAMETINIB
     Dosage: 1.85 MG
     Route: 048
     Dates: start: 20200312
  3. GSK1120212 [Suspect]
     Active Substance: TRAMETINIB
     Indication: GLIOMA
     Dosage: 1.85 MG
     Route: 048
     Dates: start: 20200306, end: 20200310

REACTIONS (33)
  - Nausea [Not Recovered/Not Resolved]
  - Gastroenteritis viral [Unknown]
  - Dehydration [Recovered/Resolved]
  - Vomiting [Recovered/Resolved]
  - Pyrexia [Recovered/Resolved]
  - Pneumonia [Not Recovered/Not Resolved]
  - Fatigue [Not Recovered/Not Resolved]
  - Pain in extremity [Recovered/Resolved]
  - Malaise [Not Recovered/Not Resolved]
  - Lacrimation increased [Recovered/Resolved]
  - Adenovirus infection [Recovered/Resolved]
  - Cough [Not Recovered/Not Resolved]
  - Vomiting [Recovered/Resolved]
  - Abdominal pain [Recovered/Resolved]
  - Neck pain [Recovered/Resolved]
  - Vomiting [Recovered/Resolved]
  - Anaemia [Not Recovered/Not Resolved]
  - Sinus tachycardia [Recovered/Resolved]
  - Atelectasis [Not Recovered/Not Resolved]
  - Dermatitis acneiform [Recovering/Resolving]
  - Constipation [Recovered/Resolved]
  - Paronychia [Not Recovered/Not Resolved]
  - Dizziness [Recovered/Resolved]
  - Chills [Recovered/Resolved]
  - Rhinorrhoea [Not Recovered/Not Resolved]
  - Hyperglycaemia [Recovered/Resolved]
  - Anaemia [Not Recovered/Not Resolved]
  - Dry skin [Not Recovered/Not Resolved]
  - Precocious puberty [Unknown]
  - Nasal congestion [Not Recovered/Not Resolved]
  - Diarrhoea [Not Recovered/Not Resolved]
  - Urticaria [Recovered/Resolved]
  - Oedema peripheral [Recovered/Resolved]

NARRATIVE: CASE EVENT DATE: 20200310
